FAERS Safety Report 10586363 (Version 2)
Quarter: 2014Q4

REPORT INFORMATION
  Report Type: Spontaneous
  Country: US (occurrence: US)
  Receive Date: 20141117
  Receipt Date: 20141202
  Transmission Date: 20150529
  Serious: No
  Sender: FDA-Public Use
  Company Number: US-009507513-1410USA014210

PATIENT
  Sex: Female

DRUGS (1)
  1. DULERA [Suspect]
     Active Substance: FORMOTEROL FUMARATE DIHYDRATE\MOMETASONE FUROATE
     Indication: ASTHMA
     Dosage: TWO PUFFS TWICE DAILY,DOSAGE FORM INHALER.
     Route: 055
     Dates: start: 2013

REACTIONS (3)
  - Drug dose omission [Unknown]
  - Product quality issue [Recovered/Resolved]
  - No adverse event [Unknown]
